FAERS Safety Report 6706971-2 (Version None)
Quarter: 2010Q2

REPORT INFORMATION
  Report Type: 
  Country: None (occurrence: None)
  Receive Date: 20100503
  Receipt Date: 20100423
  Transmission Date: 20101027
  Serious: Yes (Hospitalization)
  Sender: FDA-Public Use
  Company Number: GXKR2010GB04641

PATIENT
  Age: 65 Year
  Sex: Male

DRUGS (2)
  1. AMOXICILLIN [Suspect]
     Indication: COUGH
     Dosage: 500 MG, TID
     Route: 048
     Dates: start: 20100306, end: 20100409
  2. AMOXICILLIN [Suspect]
     Indication: OROPHARYNGEAL PAIN

REACTIONS (6)
  - BLOOD BILIRUBIN INCREASED [None]
  - FAECES PALE [None]
  - JAUNDICE CHOLESTATIC [None]
  - RENAL FAILURE ACUTE [None]
  - TUBULOINTERSTITIAL NEPHRITIS [None]
  - URINE COLOUR ABNORMAL [None]
